FAERS Safety Report 8667640 (Version 3)
Quarter: 2014Q4

REPORT INFORMATION
  Report Type: Report from Study
  Country: JP (occurrence: JP)
  Receive Date: 20120717
  Receipt Date: 20141006
  Transmission Date: 20150529
  Serious: Yes (Other)
  Sender: FDA-Public Use
  Company Number: JP-009507513-1109USA00767

PATIENT
  Age: 70 Year
  Sex: Male

DRUGS (6)
  1. EPALRESTAT [Concomitant]
     Active Substance: EPALRESTAT
  2. TAPROS [Suspect]
     Active Substance: TAFLUPROST
     Dosage: 1 GTT, QD
     Route: 047
     Dates: start: 20110912
  3. AMLODIPINE BESYLATE. [Concomitant]
     Active Substance: AMLODIPINE BESYLATE
  4. GLYBURIDE. [Concomitant]
     Active Substance: GLYBURIDE
  5. SITAGLIPTIN PHOSPHATE [Concomitant]
     Active Substance: SITAGLIPTIN PHOSPHATE
     Route: 048
  6. TAPROS [Suspect]
     Active Substance: TAFLUPROST
     Indication: NORMAL TENSION GLAUCOMA
     Dosage: 2 GTT, QD
     Route: 047
     Dates: start: 20100510, end: 20110911

REACTIONS (1)
  - Cataract [Recovered/Resolved]

NARRATIVE: CASE EVENT DATE: 20100921
